FAERS Safety Report 7550111-7 (Version None)
Quarter: 2011Q2

REPORT INFORMATION
  Report Type: 
  Country: None (occurrence: None)
  Receive Date: 20110615
  Receipt Date: 20110606
  Transmission Date: 20111010
  Serious: Yes (Other)
  Sender: FDA-Public Use
  Company Number: JP-ASTRAZENECA-2011SE34773

PATIENT
  Sex: Female

DRUGS (2)
  1. ROCURONIUM BROMIDE [Suspect]
     Dosage: DOSE AND FREQUENCY UNKNOWN.
     Route: 042
  2. DIPRIVAN [Suspect]
     Dosage: DOSE AND FREQUENCY UNKNOWN.
     Route: 041

REACTIONS (1)
  - HEPATIC FUNCTION ABNORMAL [None]
